FAERS Safety Report 10202541 (Version 1)
Quarter: 2014Q2

REPORT INFORMATION
  Report Type: Report from Study
  Country: US (occurrence: US)
  Receive Date: 20140528
  Receipt Date: 20140528
  Transmission Date: 20141212
  Serious: No
  Sender: FDA-Public Use
  Company Number: US-ABBVIE-13P-163-1139225-00

PATIENT
  Age: 68 Year
  Sex: Male
  Weight: 72.19 kg

DRUGS (17)
  1. ZEMPLAR [Suspect]
     Indication: RENAL FAILURE CHRONIC
     Dates: start: 20130117, end: 201303
  2. ZEMPLAR [Suspect]
     Indication: HYPERPARATHYROIDISM SECONDARY
  3. METOPROLOL [Concomitant]
     Indication: HYPERTENSION
  4. LISINOPRIL [Concomitant]
     Indication: HYPERTENSION
  5. AMLODIPINE [Concomitant]
     Indication: HYPERTENSION
  6. GLYBURIDE [Concomitant]
     Indication: DIABETES MELLITUS
  7. POTASSIUM CHLORIDE [Concomitant]
     Indication: HYPOKALAEMIA
  8. OXYCODONE [Concomitant]
     Indication: PAIN
  9. ZOLPIDEM [Concomitant]
     Indication: INSOMNIA
  10. ALPRAZOLAM [Concomitant]
     Indication: ANXIETY
  11. SPIRONOLACTONE [Concomitant]
     Indication: DIURETIC THERAPY
  12. CRANBERRY [Concomitant]
     Indication: URINARY TRACT DISORDER
  13. MILK THISTLE [Concomitant]
     Indication: HEPATITIS C
  14. SAW PALMETTO [Concomitant]
     Indication: PROSTATIC DISORDER
  15. FISH OIL [Concomitant]
     Indication: SUPPLEMENTATION THERAPY
  16. CENTRUM SILVER [Concomitant]
     Indication: VITAMIN SUPPLEMENTATION
  17. ACIDOPHILUS [Concomitant]
     Indication: GASTROINTESTINAL DISORDER

REACTIONS (1)
  - Drug dose omission [Unknown]
